FAERS Safety Report 4344346-4 (Version None)
Quarter: 2004Q2

REPORT INFORMATION
  Report Type: 
  Country: None (occurrence: None)
  Receive Date: 20040420
  Receipt Date: 20040407
  Transmission Date: 20050107
  Serious: Yes (Life-Threatening, Hospitalization)
  Sender: FDA-Public Use
  Company Number: 04P-062-0254381-00

PATIENT
  Age: 2 Hour
  Sex: Male
  Weight: 3.07 kg

DRUGS (1)
  1. KALETRA [Suspect]
     Dosage: PER ORAL
     Route: 048

REACTIONS (6)
  - CAESAREAN SECTION [None]
  - CEREBRAL HAEMORRHAGE NEONATAL [None]
  - CONVULSION NEONATAL [None]
  - MATERNAL DRUGS AFFECTING FOETUS [None]
  - NEONATAL APNOEIC ATTACK [None]
  - PREMATURE BABY [None]
